FAERS Safety Report 7684988-1 (Version None)
Quarter: 2011Q3

REPORT INFORMATION
  Report Type: 
  Country: None (occurrence: None)
  Receive Date: 20110816
  Receipt Date: 20110603
  Transmission Date: 20111222
  Serious: Yes (Hospitalization)
  Sender: FDA-Public Use
  Company Number: US-AMGEN-USACT2011028822

PATIENT
  Age: 67 Year
  Sex: Female

DRUGS (2)
  1. PLACEBO [Suspect]
     Indication: CARDIAC FAILURE
  2. BLINDED DARBEPOETIN ALFA [Suspect]
     Indication: CARDIAC FAILURE

REACTIONS (1)
  - COLON CANCER [None]
